FAERS Safety Report 6577308-7 (Version None)
Quarter: 2010Q1

REPORT INFORMATION
  Report Type: 
  Country: None (occurrence: None)
  Receive Date: 20100210
  Receipt Date: 20100129
  Transmission Date: 20100710
  Serious: No
  Sender: FDA-Public Use
  Company Number: US-BAYER-201012771NA

PATIENT
  Age: 43 Year
  Sex: Male

DRUGS (3)
  1. DACARBAZINE [Suspect]
     Indication: METASTATIC MALIGNANT MELANOMA
  2. FOTEMUSTINE [Suspect]
     Indication: METASTATIC MALIGNANT MELANOMA
  3. TEMODAL [Concomitant]

REACTIONS (1)
  - METASTATIC MALIGNANT MELANOMA [None]
